FAERS Safety Report 5668951-8 (Version None)
Quarter: 2008Q1

REPORT INFORMATION
  Report Type: 
  Country: None (occurrence: None)
  Receive Date: 20080312
  Receipt Date: 20080312
  Transmission Date: 20080703
  Serious: Yes (Other)
  Sender: FDA-Public Use
  Company Number: None

PATIENT
  Sex: Male
  Weight: 77.1115 kg

DRUGS (1)
  1. SIMVASTATIN [Suspect]
     Indication: BLOOD CHOLESTEROL INCREASED
     Dosage: 1 TABLET DAILY 10 MG,
     Dates: start: 20070510, end: 20070610

REACTIONS (7)
  - DRUG INEFFECTIVE [None]
  - OEDEMA PERIPHERAL [None]
  - PRURITUS [None]
  - PURULENT DISCHARGE [None]
  - RASH [None]
  - SKIN ULCER [None]
  - SKIN ULCER HAEMORRHAGE [None]
